FAERS Safety Report 7824769-9 (Version None)
Quarter: 2011Q4

REPORT INFORMATION
  Report Type: 
  Country: None (occurrence: None)
  Receive Date: 20111019
  Receipt Date: 20101215
  Transmission Date: 20120403
  Serious: No
  Sender: FDA-Public Use
  Company Number: US-BRISTOL-MYERS SQUIBB COMPANY-15443633

PATIENT
  Age: 75 Year
  Sex: Female
  Weight: 92 kg

DRUGS (1)
  1. AVALIDE [Suspect]
     Indication: BLOOD PRESSURE
     Dosage: AVALIDE 300/12.5

REACTIONS (1)
  - FALL [None]
